FAERS Safety Report 23687525 (Version 1)
Quarter: 2024Q1

REPORT INFORMATION
  Report Type: Spontaneous
  Country: IT (occurrence: IT)
  Receive Date: 20240329
  Receipt Date: 20240329
  Transmission Date: 20240410
  Serious: Yes (Other)
  Sender: FDA-Public Use
  Company Number: None

PATIENT
  Age: 69 Year
  Sex: Male
  Weight: 100 kg

DRUGS (9)
  1. ROPIVACAINE [Suspect]
     Active Substance: ROPIVACAINE
     Indication: Local anaesthesia
     Dosage: FORM OF ADMIN: SOLUTION FOR INJECTION?ROUTE OF ADMIN: EPIDURAL
     Dates: start: 20240223, end: 20240223
  2. MEPIVACAINE [Suspect]
     Active Substance: MEPIVACAINE HYDROCHLORIDE
     Indication: Local anaesthesia
     Dosage: FORM: SOLUTION FOR INJECTION?ROUTE: EPIDURAL
     Dates: start: 20240223, end: 20240223
  3. PROPOFOL [Suspect]
     Active Substance: PROPOFOL
     Indication: General anaesthesia
     Dosage: FORM: SOLUTION FOR INJECTION?ROUTE: INTRAVENOUS (NOT OTHERWISE SPECIFIED)
     Dates: start: 20240223, end: 20240223
  4. ROCURONIUM BROMIDE [Suspect]
     Active Substance: ROCURONIUM BROMIDE
     Indication: General anaesthesia
     Dosage: FORM: SOLUTION FOR INJECTION?ROUTE: INTRAVENOUS (NOT OTHERWISE SPECIFIED)
     Dates: start: 20240223, end: 20240223
  5. SUFENTANIL [Suspect]
     Active Substance: SUFENTANIL
     Indication: Anaesthesia
     Dosage: FORM: SOLUTION FOR INJECTION?ROUTE: INTRAVENOUS (NOT OTHERWISE SPECIFIED)
     Dates: start: 20240223, end: 20240223
  6. SUFENTANIL [Suspect]
     Active Substance: SUFENTANIL
     Dosage: FORM: SOLUTION FOR INJECTION?ROUTE: INTRAVENOUS (NOT OTHERWISE SPECIFIED)
     Dates: start: 20240223, end: 20240223
  7. MIDAZOLAM [Suspect]
     Active Substance: MIDAZOLAM
     Indication: Induction of anaesthesia
     Dosage: FORM: SOLUTION FOR INJECTION?ROUTE: INTRAVENOUS (NOT OTHERWISE SPECIFIED)
     Dates: start: 20240223, end: 20240223
  8. TICHE [Concomitant]
     Indication: Hypothyroidism
     Dosage: FORM: CAPSULE, SOFT?ROUTE: ORAL
  9. OLMESARTAN MEDOXOMIL [Concomitant]
     Active Substance: OLMESARTAN MEDOXOMIL
     Indication: Hypertension
     Dosage: FORM: TABLET?ROUTE: ORAL

REACTIONS (3)
  - Hypotension [Recovered/Resolved]
  - Erythema [Recovered/Resolved]
  - Anaphylactic shock [Recovered/Resolved]

NARRATIVE: CASE EVENT DATE: 20240223
